FAERS Safety Report 5855000-1 (Version None)
Quarter: 2008Q3

REPORT INFORMATION
  Report Type: 
  Country: None (occurrence: None)
  Receive Date: 20080822
  Receipt Date: 20080421
  Transmission Date: 20090109
  Serious: No
  Sender: FDA-Public Use
  Company Number: US-ABBOTT-08P-163-0448305-00

PATIENT
  Sex: Female
  Weight: 106.69 kg

DRUGS (3)
  1. SYNTHROID [Suspect]
     Indication: HORMONE REPLACEMENT THERAPY
     Route: 048
     Dates: start: 20060101, end: 20080416
  2. SYNTHROID [Suspect]
     Route: 048
     Dates: start: 20080416
  3. OLMESARTAN MEDOXOMIL [Concomitant]
     Indication: HYPERTENSION
     Dosage: 40/12.5 MG DAILY
     Route: 048
     Dates: start: 20070101

REACTIONS (2)
  - BLOOD THYROID STIMULATING HORMONE DECREASED [None]
  - LABORATORY TEST ABNORMAL [None]
